FAERS Safety Report 17985602 (Version 1)
Quarter: 2020Q3

REPORT INFORMATION
  Report Type: Spontaneous
  Country: CH (occurrence: CH)
  Receive Date: 20200706
  Receipt Date: 20200706
  Transmission Date: 20201103
  Serious: Yes (Other)
  Sender: FDA-Public Use
  Company Number: CH-ASTRAZENECA-2020SE85106

PATIENT
  Age: 74 Year
  Sex: Female
  Weight: 75 kg

DRUGS (9)
  1. ALENDRONATE SODIUM. [Suspect]
     Active Substance: ALENDRONATE SODIUM
     Indication: OSTEOPOROSIS
     Dosage: 70 MILLIGRAMS, 1 ? ONCE A WEEK
     Route: 041
     Dates: start: 20190118, end: 20191030
  2. MIACALCIC [Suspect]
     Active Substance: CALCITONIN SALMON
     Dosage: 200 INTERNATIONAL UNITS, 1 ? DAILY
     Route: 065
     Dates: start: 20190128, end: 20190226
  3. PREDNISONE. [Suspect]
     Active Substance: PREDNISONE
     Route: 065
     Dates: start: 20190125, end: 20190129
  4. CANDESARTAN/HYDROCHLOROTHIAZIDE [Concomitant]
     Active Substance: CANDESARTAN CILEXETIL\HYDROCHLOROTHIAZIDE
  5. ENTOCORT [Suspect]
     Active Substance: BUDESONIDE
     Indication: COLITIS MICROSCOPIC
     Dosage: UNKNOWN
     Route: 048
     Dates: start: 20190930, end: 20191030
  6. BUDENOFALK [Suspect]
     Active Substance: BUDESONIDE
     Route: 065
     Dates: start: 20190202, end: 20190216
  7. ENTOCORT [Suspect]
     Active Substance: BUDESONIDE
     Indication: COLITIS MICROSCOPIC
     Dosage: 3.0MG UNKNOWN
     Route: 048
     Dates: start: 20190711, end: 20190930
  8. ENTOCORT [Suspect]
     Active Substance: BUDESONIDE
     Indication: COLITIS MICROSCOPIC
     Dosage: 3.0MG UNKNOWN
     Route: 048
     Dates: start: 20200306
  9. ASPIRIN CARDIO [Concomitant]
     Active Substance: ASPIRIN

REACTIONS (1)
  - Pathological fracture [Not Recovered/Not Resolved]

NARRATIVE: CASE EVENT DATE: 20191030
